FAERS Safety Report 11542145 (Version 1)
Quarter: 2015Q3

REPORT INFORMATION
  Report Type: Spontaneous
  Country: US (occurrence: US)
  Receive Date: 20150923
  Receipt Date: 20150923
  Transmission Date: 20151125
  Serious: No
  Sender: FDA-Public Use
  Company Number: US-TEVA-594837USA

PATIENT
  Age: 17 Year
  Sex: Female
  Weight: 51.76 kg

DRUGS (2)
  1. MODAFINIL. [Suspect]
     Active Substance: MODAFINIL
     Indication: FATIGUE
     Dates: start: 201507, end: 201507
  2. PROVIGIL [Suspect]
     Active Substance: MODAFINIL
     Indication: FATIGUE
     Dates: start: 20150724, end: 20150728

REACTIONS (6)
  - Rash [Recovered/Resolved]
  - Gastrointestinal disorder [Unknown]
  - Constipation [Unknown]
  - Decreased appetite [Recovered/Resolved]
  - Malabsorption [Unknown]
  - Weight decreased [Recovered/Resolved]

NARRATIVE: CASE EVENT DATE: 20150724
